FAERS Safety Report 9223852 (Version 1)
Quarter: 2013Q2

REPORT INFORMATION
  Report Type: Spontaneous
  Country: US (occurrence: US)
  Receive Date: 20130411
  Receipt Date: 20130411
  Transmission Date: 20140414
  Serious: Yes (Hospitalization, Other)
  Sender: FDA-Public Use
  Company Number: US-AMGEN-USASP2011061080

PATIENT
  Age: 55 Year
  Sex: Male

DRUGS (7)
  1. ENBREL [Suspect]
     Indication: PSORIATIC ARTHROPATHY
     Dosage: 50 MG, QWK
     Route: 058
     Dates: start: 2000
  2. MELOXICAM [Concomitant]
     Dosage: 7.5 MG, UNK
  3. NORTRIPTYLIN [Concomitant]
     Dosage: 25 MG, UNK
  4. ALLOPURINOL [Concomitant]
     Dosage: 300 MG, UNK
  5. OXYCONTIN [Concomitant]
     Dosage: 10 MG CR
  6. FOLIC ACID [Concomitant]
     Dosage: UNK
  7. PERCOCET                           /00446701/ [Concomitant]
     Dosage: 2.5-325

REACTIONS (6)
  - Hip arthroplasty [Recovered/Resolved]
  - Back disorder [Recovered/Resolved]
  - Intervertebral disc degeneration [Unknown]
  - Back pain [Not Recovered/Not Resolved]
  - Musculoskeletal stiffness [Not Recovered/Not Resolved]
  - Injection site bruising [Recovered/Resolved]
